FAERS Safety Report 16677838 (Version 1)
Quarter: 2019Q3

REPORT INFORMATION
  Report Type: Spontaneous
  Country: US (occurrence: US)
  Receive Date: 20190621
  Receipt Date: 20190621
  Transmission Date: 20191004
  Serious: No
  Sender: FDA-Public Use
  Company Number: None

PATIENT
  Age: 51 Year
  Sex: Female
  Weight: 87.09 kg

DRUGS (12)
  1. VITAMIN D3 [Concomitant]
     Active Substance: CHOLECALCIFEROL
  2. CLONAZEPAM. [Concomitant]
     Active Substance: CLONAZEPAM
  3. MAGNESIUM [Concomitant]
     Active Substance: MAGNESIUM
  4. MULTI-VITAMIN [Concomitant]
     Active Substance: .ALPHA.-TOCOPHEROL ACETATE, DL-\ASCORBIC ACID\CYANOCOBALAMIN\FLUORIDE ION\FOLIC ACID\NIACIN\PYRIDOXINE\RIBOFLAVIN\THIAMINE\VITAMIN A\VITAMIN D
  5. CELECOXIB. [Suspect]
     Active Substance: CELECOXIB
     Indication: ARTHRITIS
     Dosage: ?          QUANTITY:1 CAPSULE;?
     Route: 048
     Dates: start: 20190606, end: 20190620
  6. LYRICA [Concomitant]
     Active Substance: PREGABALIN
  7. METOPROLOL. [Concomitant]
     Active Substance: METOPROLOL
  8. FLEXERIL [Concomitant]
     Active Substance: CYCLOBENZAPRINE HYDROCHLORIDE
  9. TERBINAFINE. [Concomitant]
     Active Substance: TERBINAFINE
  10. FISH OIL [Concomitant]
     Active Substance: FISH OIL
  11. TYLENOL [Concomitant]
     Active Substance: ACETAMINOPHEN
  12. IRON [Concomitant]
     Active Substance: IRON

REACTIONS (3)
  - Arthritis [None]
  - Arthralgia [None]
  - Pain in extremity [None]

NARRATIVE: CASE EVENT DATE: 20190610
